FAERS Safety Report 26067338 (Version 1)
Quarter: 2025Q4

REPORT INFORMATION
  Report Type: Report from Study
  Country: US (occurrence: US)
  Receive Date: 20251120
  Receipt Date: 20251120
  Transmission Date: 20260117
  Serious: Yes (Other)
  Sender: ABBVIE
  Company Number: US-ABBVIE-6550344

PATIENT
  Sex: Male

DRUGS (2)
  1. HUMIRA [Suspect]
     Active Substance: ADALIMUMAB
     Indication: Product used for unknown indication
     Route: 058
     Dates: start: 20200201, end: 2025
  2. METHOTREXATE [Suspect]
     Active Substance: METHOTREXATE
     Indication: Product used for unknown indication
     Route: 065

REACTIONS (7)
  - Chronic kidney disease [Unknown]
  - Adverse drug reaction [Unknown]
  - Crohn^s disease [Recovering/Resolving]
  - Oral fungal infection [Unknown]
  - Fungal pharyngitis [Unknown]
  - Fungal skin infection [Unknown]
  - Ear infection fungal [Unknown]
